FAERS Safety Report 8789740 (Version 2)
Quarter: 2012Q4

REPORT INFORMATION
  Report Type: 
  Country: US (occurrence: None)
  Receive Date: 20120905
  Receipt Date: 20120918
  Transmission Date: 20130627
  Serious: Yes (Other)
  Sender: FDA-Public Use
  Company Number: TPA2012A05950

PATIENT
  Age: 62 Year
  Sex: Male

DRUGS (1)
  1. PREVACID [Suspect]

REACTIONS (3)
  - Bone disorder [None]
  - Osteonecrosis [None]
  - Drug dependence [None]
